FAERS Safety Report 16490496 (Version 1)
Quarter: 2019Q3

REPORT INFORMATION
  Report Type: Spontaneous
  Country: US (occurrence: US)
  Receive Date: 20190627
  Receipt Date: 20190627
  Transmission Date: 20191004
  Serious: Yes (Other)
  Sender: FDA-Public Use
  Company Number: None

PATIENT
  Age: 37 Year
  Sex: Female
  Weight: 70.2 kg

DRUGS (1)
  1. BUPROPION XL 300 MG [Suspect]
     Active Substance: BUPROPION
     Indication: DEPRESSION
     Dosage: ?          QUANTITY:1 TABLET(S);?
     Route: 048
     Dates: start: 20190517

REACTIONS (7)
  - Drug ineffective [None]
  - Irritability [None]
  - Depression [None]
  - Rash [None]
  - Agitation [None]
  - Product availability issue [None]
  - Product substitution issue [None]

NARRATIVE: CASE EVENT DATE: 20190617
